FAERS Safety Report 8596685-9 (Version None)
Quarter: 2012Q3

REPORT INFORMATION
  Report Type: 
  Country: None (occurrence: None)
  Receive Date: 20120815
  Receipt Date: 20120803
  Transmission Date: 20120928
  Serious: No
  Sender: FDA-Public Use
  Company Number: US-ASTRAZENECA-2012SE02526

PATIENT
  Age: 69 Year
  Sex: Female

DRUGS (1)
  1. BRILINTA [Suspect]
     Route: 048

REACTIONS (4)
  - HEARING IMPAIRED [None]
  - DYSPNOEA [None]
  - EYE DISORDER [None]
  - STENT MALFUNCTION [None]
